FAERS Safety Report 11595740 (Version 1)
Quarter: 2015Q4

REPORT INFORMATION
  Report Type: Spontaneous
  Country: US (occurrence: US)
  Receive Date: 20151006
  Receipt Date: 20151006
  Transmission Date: 20160304
  Serious: Yes (Other)
  Sender: FDA-Public Use
  Company Number: US-BAYER-2015-433385

PATIENT
  Age: 28 Year
  Sex: Female

DRUGS (4)
  1. MIRALAX [Concomitant]
     Active Substance: POLYETHYLENE GLYCOL 3350
     Indication: CONSTIPATION
  2. MIRENA [Suspect]
     Active Substance: LEVONORGESTREL
     Indication: CONTRACEPTION
     Dosage: 20 MCG/24HR, CONT
     Route: 015
     Dates: start: 20110128, end: 20130926
  3. MIRENA [Suspect]
     Active Substance: LEVONORGESTREL
     Indication: CONTRACEPTION
     Dosage: 20 MCG/24HR, CONT
     Route: 015
     Dates: start: 20110210, end: 20130926
  4. LINZESS [Concomitant]
     Active Substance: LINACLOTIDE
     Indication: CONSTIPATION

REACTIONS (34)
  - Device dislocation [Not Recovered/Not Resolved]
  - Colon injury [None]
  - Scar [None]
  - Flatulence [None]
  - Procedural complication [Not Recovered/Not Resolved]
  - Loss of libido [None]
  - Urinary tract infection [Not Recovered/Not Resolved]
  - Fungal infection [None]
  - Emotional distress [None]
  - Uterine injury [Not Recovered/Not Resolved]
  - Salpingectomy [None]
  - Pelvic adhesions [None]
  - Hormone level abnormal [None]
  - Device dislocation [Not Recovered/Not Resolved]
  - Ovarian cyst [None]
  - Genital haemorrhage [None]
  - Pyelonephritis [None]
  - Pelvic organ injury [None]
  - Medical device pain [Not Recovered/Not Resolved]
  - Flank pain [Not Recovered/Not Resolved]
  - Diarrhoea [None]
  - Body temperature increased [None]
  - Procedural pain [Not Recovered/Not Resolved]
  - Activities of daily living impaired [None]
  - Uterine perforation [Not Recovered/Not Resolved]
  - Constipation [None]
  - Abdominal injury [Not Recovered/Not Resolved]
  - Breast mass [None]
  - Abdominal pain lower [Not Recovered/Not Resolved]
  - Inflammation [None]
  - Injury [Not Recovered/Not Resolved]
  - Skin discolouration [None]
  - Blood urine present [None]
  - Vaginal infection [None]

NARRATIVE: CASE EVENT DATE: 201101
